FAERS Safety Report 15226966 (Version 2)
Quarter: 2019Q3

REPORT INFORMATION
  Report Type: Spontaneous
  Country: SE (occurrence: SE)
  Receive Date: 20180801
  Receipt Date: 20190929
  Transmission Date: 20191004
  Serious: Yes (Other)
  Sender: FDA-Public Use
  Company Number: PHHY2018SE061912

PATIENT
  Age: 53 Year
  Sex: Female

DRUGS (1)
  1. GILENYA [Suspect]
     Active Substance: FINGOLIMOD HYDROCHLORIDE
     Indication: MULTIPLE SCLEROSIS
     Dosage: 0.5 MG, UNK
     Route: 065

REACTIONS (2)
  - Carcinoma in situ [Not Recovered/Not Resolved]
  - Otitis media [Unknown]

NARRATIVE: CASE EVENT DATE: 20171212
